FAERS Safety Report 9491335 (Version 1)
Quarter: 2013Q1

REPORT INFORMATION
  Report Type: Not Available
  Country: US (occurrence: US)
  Receive Date: 20120619
  Receipt Date: 20120619
  Transmission Date: 20140127
  Serious: No
  Sender: FDA-Public Use
  Company Number: US-LUNDBECK-DKLU1080232

PATIENT
  Sex: Male
  Weight: 11 kg

DRUGS (4)
  1. SABRIL (FOR ORAL SOLUTION) [Suspect]
     Indication: INFANTILE SPASMS
     Dosage: 1/2 OF 250 MG BID X 3 DAYS
     Dates: start: 20120504
  2. SABRIL (FOR ORAL SOLUTION) [Suspect]
     Dosage: 325 MG BID X 3 DAYS
  3. SABRIL (FOR ORAL SOLUTION) [Suspect]
  4. PREDNISOLONE [Concomitant]
     Indication: PRODUCT USED FOR UNKNOWN INDICATION

REACTIONS (1)
  - Eye movement disorder [Not Recovered/Not Resolved]
